FAERS Safety Report 11887809 (Version 2)
Quarter: 2016Q1

REPORT INFORMATION
  Report Type: Other
  Country: IT (occurrence: IT)
  Receive Date: 20160105
  Receipt Date: 20160129
  Transmission Date: 20160526
  Serious: Yes (Life-Threatening)
  Sender: FDA-Public Use
  Company Number: IT-JUBILANT GENERICS LIMITED-1046117

PATIENT
  Age: 76 Year
  Sex: Male

DRUGS (6)
  1. CEFTRIAXONE. [Suspect]
     Active Substance: CEFTRIAXONE
  2. GENTAMICIN. [Suspect]
     Active Substance: GENTAMICIN
  3. RIFAMPICIN [Suspect]
     Active Substance: RIFAMPIN
  4. CUBICIN [Suspect]
     Active Substance: DAPTOMYCIN
  5. VANCOMYCIN HCL [Suspect]
     Active Substance: VANCOMYCIN HYDROCHLORIDE
  6. PANTOPRAZOLE [Suspect]
     Active Substance: PANTOPRAZOLE SODIUM

REACTIONS (1)
  - Drug reaction with eosinophilia and systemic symptoms [Recovered/Resolved]

NARRATIVE: CASE EVENT DATE: 20160111
